FAERS Safety Report 11025289 (Version 1)
Quarter: 2015Q2

REPORT INFORMATION
  Report Type: Report from Study
  Country: JP (occurrence: JP)
  Receive Date: 20150414
  Receipt Date: 20150414
  Transmission Date: 20150821
  Serious: Yes (Hospitalization, Other)
  Sender: FDA-Public Use
  Company Number: JP-GLAXOSMITHKLINE-B0972010A

PATIENT
  Age: 65 Year
  Sex: Female
  Weight: 44 kg

DRUGS (18)
  1. EPOPROSTENOL SODIUM. [Suspect]
     Active Substance: EPOPROSTENOL SODIUM
     Indication: PULMONARY ARTERIAL HYPERTENSION
     Route: 042
     Dates: start: 20100816
  2. AMBRISENTAN [Suspect]
     Active Substance: AMBRISENTAN
     Dosage: 1.25 MG, QD
     Route: 048
     Dates: start: 20110928, end: 20120207
  3. CRAVIT [Suspect]
     Active Substance: LEVOFLOXACIN
     Dosage: UNK
     Route: 041
     Dates: start: 20121128, end: 20121205
  4. ADCIRCA [Concomitant]
     Active Substance: TADALAFIL
     Indication: PULMONARY ARTERIAL HYPERTENSION
     Route: 048
  5. ASPARA POTASSIUM [Concomitant]
     Active Substance: POTASSIUM ASPARTATE
     Route: 048
  6. AMBRISENTAN [Suspect]
     Active Substance: AMBRISENTAN
     Route: 048
     Dates: start: 20110316, end: 20110726
  7. NEORAL [Concomitant]
     Active Substance: CYCLOSPORINE
     Route: 048
  8. PARIET [Concomitant]
     Active Substance: RABEPRAZOLE SODIUM
     Route: 048
  9. FUROSEMIDE. [Concomitant]
     Active Substance: FUROSEMIDE
     Route: 048
  10. AMBRISENTAN [Suspect]
     Active Substance: AMBRISENTAN
     Indication: PULMONARY ARTERIAL HYPERTENSION
     Route: 048
     Dates: start: 20110216, end: 20110315
  11. SELBEX [Concomitant]
     Active Substance: TEPRENONE
     Route: 048
  12. AMBRISENTAN [Suspect]
     Active Substance: AMBRISENTAN
     Dosage: 10 MG, QD
     Route: 048
     Dates: start: 20120208
  13. AMBRISENTAN [Suspect]
     Active Substance: AMBRISENTAN
     Dosage: 1.25 MG, QD
     Route: 048
     Dates: end: 20121208
  14. PREDNISOLONE. [Concomitant]
     Active Substance: PREDNISOLONE
     Route: 048
  15. SILECE [Concomitant]
     Active Substance: FLUNITRAZEPAM
     Route: 048
  16. MEIACT [Suspect]
     Active Substance: CEFDITOREN PIVOXIL
     Dosage: UNK
     Route: 048
     Dates: start: 20121128, end: 20121205
  17. AMBRISENTAN [Suspect]
     Active Substance: AMBRISENTAN
     Dosage: 2.5 MG, QD
     Route: 048
     Dates: start: 20110727, end: 20110927
  18. LOXONIN [Concomitant]
     Active Substance: LOXOPROFEN SODIUM
     Route: 048

REACTIONS (5)
  - Epistaxis [Recovered/Resolved]
  - Thrombocytopenia [Not Recovered/Not Resolved]
  - Pancytopenia [Recovering/Resolving]
  - Pneumonia mycoplasmal [Recovered/Resolved]
  - Hepatic function abnormal [Recovered/Resolved]

NARRATIVE: CASE EVENT DATE: 20110727
